FAERS Safety Report 16094805 (Version 2)
Quarter: 2019Q2

REPORT INFORMATION
  Report Type: Spontaneous
  Country: US (occurrence: US)
  Receive Date: 20190320
  Receipt Date: 20190403
  Transmission Date: 20190711
  Serious: No
  Sender: FDA-Public Use
  Company Number: US-MACLEODS PHARMACEUTICALS US LTD-MAC2019020503

PATIENT

DRUGS (2)
  1. LOSARTAN POTASSIUM/HYDROCHLOROTHIAZIDE TABLET 100 MG/25 MG [Suspect]
     Active Substance: HYDROCHLOROTHIAZIDE\LOSARTAN POTASSIUM
     Indication: HYPERTENSION
     Dosage: LOSARTAN HCTZ 100/25 MG STARTED 8 YEARS AGO OD
     Route: 048
  2. AMLODIPINE BESYLATE. [Suspect]
     Active Substance: AMLODIPINE BESYLATE
     Indication: HYPERTENSION
     Dosage: 5 MILLIGRAM TABLET OD STARTED 8 YEARS AGO
     Route: 048

REACTIONS (1)
  - Heart rate increased [Recovered/Resolved]
